FAERS Safety Report 20633294 (Version 1)
Quarter: 2022Q1

REPORT INFORMATION
  Report Type: Spontaneous
  Country: NL (occurrence: NL)
  Receive Date: 20220324
  Receipt Date: 20220324
  Transmission Date: 20220423
  Serious: Yes (Hospitalization, Other)
  Sender: FDA-Public Use
  Company Number: NL-Accord-256432

PATIENT
  Age: 75 Year
  Sex: Female
  Weight: 98 kg

DRUGS (42)
  1. RITUXIMAB [Suspect]
     Active Substance: RITUXIMAB
     Dosage: ONCE EVERY 3 WEEKS
     Route: 042
     Dates: start: 20210826, end: 20211216
  2. EPCORITAMAB [Suspect]
     Active Substance: EPCORITAMAB
     Dosage: PRIMING DOSE: 0.16MG, SINGLE
     Route: 058
     Dates: start: 20210826, end: 20210826
  3. EPCORITAMAB [Suspect]
     Active Substance: EPCORITAMAB
     Dosage: FULL DOSE : 48 MG, ONCE EVERY 4 WEEKS (C7)
     Route: 058
     Dates: start: 20210107, end: 20210107
  4. EPCORITAMAB [Suspect]
     Active Substance: EPCORITAMAB
     Dosage: INTERMEDIATE DOSE:0.8MG, SINGLE
     Route: 058
     Dates: start: 20210901, end: 20210901
  5. EPCORITAMAB [Suspect]
     Active Substance: EPCORITAMAB
     Dosage: FULL DOSE:48MG, WEEKLY (C1-4)
     Route: 058
     Dates: start: 20210908, end: 20211118
  6. EPCORITAMAB [Suspect]
     Active Substance: EPCORITAMAB
     Dosage: FULL DOSE : 48 MG, ONCE EVERY 3 WEEKS (C5-6)
     Route: 058
     Dates: start: 20211125, end: 20211216
  7. VINCRISTINE [Suspect]
     Active Substance: VINCRISTINE
     Dosage: ONCE EVERY 3 WEEKS
     Route: 042
     Dates: start: 20210826, end: 20211216
  8. DEXAMETHASONE [Suspect]
     Active Substance: DEXAMETHASONE
     Dosage: QD
     Route: 037
     Dates: start: 20211014, end: 20211014
  9. DEXAMETHASONE [Suspect]
     Active Substance: DEXAMETHASONE
     Dosage: QD
     Route: 037
     Dates: start: 20210915, end: 20210915
  10. PREDNISONE [Suspect]
     Active Substance: PREDNISONE
     Dosage: 1X/DAY
     Route: 048
     Dates: start: 20211103, end: 20211106
  11. PREDNISONE [Suspect]
     Active Substance: PREDNISONE
     Dosage: 1X/DAY
     Route: 048
     Dates: start: 20211014, end: 20211017
  12. PREDNISONE [Suspect]
     Active Substance: PREDNISONE
     Dosage: 1X/DAY
     Route: 042
     Dates: start: 20210826, end: 20210826
  13. PREDNISONE [Suspect]
     Active Substance: PREDNISONE
     Dosage: 1X/DAY
     Route: 048
     Dates: start: 20210827, end: 20210830
  14. PREDNISONE [Suspect]
     Active Substance: PREDNISONE
     Dosage: 1X/DAY
     Route: 048
     Dates: start: 20210915, end: 20210918
  15. PREDNISONE [Suspect]
     Active Substance: PREDNISONE
     Dosage: UNK
  16. CYCLOPHOSPHAMIDE [Suspect]
     Active Substance: CYCLOPHOSPHAMIDE
     Route: 042
     Dates: start: 20210826, end: 20211216
  17. DOXORUBICIN HYDROCHLORIDE [Suspect]
     Active Substance: DOXORUBICIN HYDROCHLORIDE
     Dosage: ONCE EVERY 3 WEEKS
     Route: 042
     Dates: start: 20210826, end: 20211216
  18. PREDNISONE [Concomitant]
     Active Substance: PREDNISONE
     Dates: start: 20210901, end: 20210911
  19. DABIGATRAN [Concomitant]
     Active Substance: DABIGATRAN
     Dates: start: 20210714
  20. PEGFILGRASTIM [Concomitant]
     Active Substance: PEGFILGRASTIM
     Dates: start: 20210915
  21. MAGNESIUM [Concomitant]
     Active Substance: MAGNESIUM
     Dates: start: 20211206, end: 20220106
  22. CEFUROXIME [Concomitant]
     Active Substance: CEFUROXIME
     Dates: start: 20220112
  23. METOCLOPRAMIDE [Concomitant]
     Active Substance: METOCLOPRAMIDE
     Dates: start: 20211025, end: 20220118
  24. GENTAMICIN [Concomitant]
     Active Substance: GENTAMICIN
     Dates: start: 20220113, end: 20220113
  25. BRIMONIDINE [Concomitant]
     Active Substance: BRIMONIDINE TARTRATE
     Dates: start: 20210929
  26. VANCOMYCIN [Concomitant]
     Active Substance: VANCOMYCIN
     Dates: start: 20211213, end: 20220113
  27. MAGNESIUM SULFATE [Concomitant]
     Active Substance: MAGNESIUM SULFATE
     Dates: start: 20220114, end: 20220114
  28. CICLOPIROX [Concomitant]
     Active Substance: CICLOPIROX
     Dates: start: 20211002
  29. CALCIUM CARBONATE [Concomitant]
     Active Substance: CALCIUM CARBONATE
     Dates: start: 20211202
  30. PAROXETINE [Concomitant]
     Active Substance: PAROXETINE
     Dates: start: 20170123
  31. DEXAMETHASONE [Concomitant]
     Active Substance: DEXAMETHASONE
     Dates: start: 20211118, end: 20211118
  32. METOPROLOL [Concomitant]
     Active Substance: METOPROLOL
     Dates: start: 20210714
  33. LEVOTHYROXINE [Concomitant]
     Active Substance: LEVOTHYROXINE
     Dates: start: 20180212
  34. GRANISETRON [Concomitant]
     Active Substance: GRANISETRON
     Dates: start: 20211216, end: 20211216
  35. DABIGATRAN [Concomitant]
     Active Substance: DABIGATRAN
     Dates: start: 20210714
  36. NOVORAPID [Concomitant]
     Active Substance: INSULIN ASPART
     Dates: start: 20211202
  37. POTASSIUM CHLORIDE [Concomitant]
     Active Substance: POTASSIUM CHLORIDE
     Dates: start: 20210929
  38. ACETAMINOPHEN [Concomitant]
     Active Substance: ACETAMINOPHEN
     Dates: start: 20210922
  39. LOPERAMIDE [Concomitant]
     Active Substance: LOPERAMIDE
     Dates: start: 20211207
  40. DIGOXIN [Concomitant]
     Active Substance: DIGOXIN
     Dates: start: 20211119, end: 20220112
  41. DORZOLAMIDE HYDROCHLORIDE AND TIMOLOL MALEATE [Concomitant]
     Active Substance: DORZOLAMIDE HYDROCHLORIDE\TIMOLOL MALEATE
     Dates: start: 20210929, end: 20220112
  42. ALGELDRATE/MAGNESIUM HYDROXIDE [Concomitant]
     Dates: start: 20211206, end: 20220116

REACTIONS (2)
  - Pneumonia klebsiella [Recovered/Resolved]
  - Off label use [Unknown]

NARRATIVE: CASE EVENT DATE: 20220111
